FAERS Safety Report 4786884-6 (Version None)
Quarter: 2005Q3

REPORT INFORMATION
  Report Type: 
  Country: None (occurrence: None)
  Receive Date: 20050930
  Receipt Date: 20050916
  Transmission Date: 20060218
  Serious: Yes (Hospitalization)
  Sender: FDA-Public Use
  Company Number: 2005P1000441

PATIENT
  Age: 36 Year
  Sex: Male

DRUGS (1)
  1. BUSULFEX [Suspect]
     Indication: MULTIPLE MYELOMA
     Dosage: 6 UNK, IV
     Route: 042

REACTIONS (2)
  - CONVULSION [None]
  - MORPHOEA [None]
